FAERS Safety Report 8580926-8 (Version None)
Quarter: 2012Q3

REPORT INFORMATION
  Report Type: 
  Country: None (occurrence: None)
  Receive Date: 20120727
  Receipt Date: 20120718
  Transmission Date: 20120928
  Serious: Yes (Hospitalization)
  Sender: FDA-Public Use
  Company Number: ACO_31164_2012

PATIENT
  Age: 67 Year
  Sex: Female
  Weight: 74.8 kg

DRUGS (16)
  1. BACLOFEN [Suspect]
     Indication: MULTIPLE SCLEROSIS
     Dosage: ORAL
     Route: 048
     Dates: start: 20120101
  2. BACLOFEN [Suspect]
     Indication: PAIN IN EXTREMITY
     Dosage: ORAL
     Route: 048
     Dates: start: 20120101
  3. SIMVASTATIN [Concomitant]
  4. LEVOTHYROXINE SODIUM [Concomitant]
  5. CITALOPRAM HYDROBROMIDE [Concomitant]
  6. ASPIRIN [Concomitant]
  7. FUROSEMIDE [Concomitant]
  8. ISOSORBIDE DINITRATE [Concomitant]
  9. BACLOFEN [Suspect]
     Indication: MULTIPLE SCLEROSIS
     Dosage: IMPLANT
     Dates: end: 20120101
  10. BACLOFEN [Suspect]
     Indication: PAIN IN EXTREMITY
     Dosage: IMPLANT
     Dates: end: 20120101
  11. POTASSIUM (POTASSIUM) [Concomitant]
  12. CYCLOBENZAPRINE [Concomitant]
  13. ZETIA [Concomitant]
  14. PANTOPRAZOLE [Concomitant]
  15. AMPYRA [Suspect]
     Indication: GAIT DISTURBANCE
     Dosage: 10 MG, BID, ORAL
     Route: 048
     Dates: start: 20110101
  16. TRIAZOLAM [Concomitant]

REACTIONS (4)
  - RETINAL DETACHMENT [None]
  - BACK PAIN [None]
  - DEVICE KINK [None]
  - MULTIPLE SCLEROSIS RELAPSE [None]
